FAERS Safety Report 20544822 (Version 3)
Quarter: 2024Q3

REPORT INFORMATION
  Report Type: Spontaneous
  Country: US (occurrence: US)
  Receive Date: 20220303
  Receipt Date: 20240705
  Transmission Date: 20241017
  Serious: Yes (Hospitalization, Disabling, Other)
  Sender: ORGANON
  Company Number: US-ORGANON-O2203USA000161

PATIENT
  Sex: Male
  Weight: 81.633 kg

DRUGS (2)
  1. SINGULAIR [Suspect]
     Active Substance: MONTELUKAST SODIUM
     Indication: Asthma
     Dosage: 1 PILL ONE TIME A DAY IN THE EVENING
     Route: 048
     Dates: start: 2005, end: 2015
  2. SINGULAIR [Suspect]
     Active Substance: MONTELUKAST SODIUM
     Indication: Hypersensitivity

REACTIONS (7)
  - Suicidal ideation [Unknown]
  - Schizophrenia [Recovering/Resolving]
  - Neuropsychological symptoms [Not Recovered/Not Resolved]
  - Intentional self-injury [Unknown]
  - Hallucination [Not Recovered/Not Resolved]
  - Depression [Not Recovered/Not Resolved]
  - Anxiety [Unknown]

NARRATIVE: CASE EVENT DATE: 20050101
